FAERS Safety Report 21821053 (Version 1)
Quarter: 2023Q1

REPORT INFORMATION
  Report Type: Spontaneous
  Country: FR (occurrence: FR)
  Receive Date: 20230105
  Receipt Date: 20230105
  Transmission Date: 20230418
  Serious: Yes (Hospitalization)
  Sender: FDA-Public Use
  Company Number: None

PATIENT
  Age: 79 Year
  Sex: Male
  Weight: 101.4 kg

DRUGS (8)
  1. ZELBORAF [Suspect]
     Active Substance: VEMURAFENIB
     Indication: Hairy cell leukaemia
     Route: 065
     Dates: start: 20221117, end: 202212
  2. ALLOPURINOL [Concomitant]
     Active Substance: ALLOPURINOL
  3. KARDEGIC [Concomitant]
     Active Substance: ASPIRIN DL-LYSINE
     Dosage: KARDEGIC 75 MG, POWDER FOR ORAL SOLUTION IN SACHET-DOSE
  4. ZOPICLONE [Concomitant]
     Active Substance: ZOPICLONE
  5. MIRTAZAPINE [Concomitant]
     Active Substance: MIRTAZAPINE
  6. BISOPROLOL FUMARATE [Concomitant]
     Active Substance: BISOPROLOL FUMARATE
  7. ATORVASTATIN [Concomitant]
     Active Substance: ATORVASTATIN
  8. PANTOPRAZOLE [Concomitant]
     Active Substance: PANTOPRAZOLE

REACTIONS (1)
  - Rash maculo-papular [Recovering/Resolving]

NARRATIVE: CASE EVENT DATE: 20221204
